FAERS Safety Report 6084857-7 (Version None)
Quarter: 2009Q1

REPORT INFORMATION
  Report Type: 
  Country: None (occurrence: None)
  Receive Date: 20090218
  Receipt Date: 20090203
  Transmission Date: 20090719
  Serious: Yes (Other)
  Sender: FDA-Public Use
  Company Number: 8042739

PATIENT

DRUGS (1)
  1. CIMZIA [Suspect]
     Dosage: 400 MG SC
     Route: 058

REACTIONS (2)
  - ABDOMINAL INFECTION [None]
  - STAPHYLOCOCCAL INFECTION [None]
